FAERS Safety Report 19574654 (Version 2)
Quarter: 2021Q4

REPORT INFORMATION
  Report Type: Other
  Country: CA (occurrence: None)
  Receive Date: 20210719
  Receipt Date: 20211221
  Transmission Date: 20220304
  Serious: Yes (Other)
  Sender: FDA-Public Use
  Company Number: CA-ROCHE-2636997

PATIENT
  Age: 17 Year
  Sex: Male

DRUGS (10)
  1. ACTEMRA [Suspect]
     Active Substance: TOCILIZUMAB
     Indication: Systemic inflammatory response syndrome
     Dosage: IS ON HOLD DUE TO LOW WBCS
     Route: 058
     Dates: start: 20200606
  2. ACTEMRA [Suspect]
     Active Substance: TOCILIZUMAB
     Route: 058
     Dates: start: 2020
  3. ACTEMRA [Suspect]
     Active Substance: TOCILIZUMAB
     Route: 058
     Dates: end: 202104
  4. ACTEMRA [Suspect]
     Active Substance: TOCILIZUMAB
     Route: 058
     Dates: start: 202104
  5. CALCIUM [Concomitant]
     Active Substance: CALCIUM
     Indication: Product used for unknown indication
  6. ERGOCALCIFEROL [Concomitant]
     Active Substance: ERGOCALCIFEROL
     Indication: Product used for unknown indication
  7. PREDNISONE [Concomitant]
     Active Substance: PREDNISONE
     Indication: Product used for unknown indication
     Dates: end: 202011
  8. PREDNISONE [Concomitant]
     Active Substance: PREDNISONE
     Dosage: WEANING OFF
     Dates: start: 2021
  9. PREDNISONE [Concomitant]
     Active Substance: PREDNISONE
     Dates: start: 2021, end: 2021
  10. PREDNISONE [Concomitant]
     Active Substance: PREDNISONE
     Dates: start: 2021

REACTIONS (5)
  - White blood cell count decreased [Unknown]
  - Off label use [Unknown]
  - Fatigue [Unknown]
  - Malaise [Unknown]
  - Neutropenia [Unknown]

NARRATIVE: CASE EVENT DATE: 20200611
